FAERS Safety Report 25085317 (Version 1)
Quarter: 2025Q1

REPORT INFORMATION
  Report Type: Spontaneous
  Country: US (occurrence: None)
  Receive Date: 20250314
  Receipt Date: 20250314
  Transmission Date: 20250408
  Serious: Yes (Life-Threatening, Hospitalization, Other)
  Sender: FDA-CTU
  Company Number: None

PATIENT
  Age: 70 Year
  Sex: Male
  Weight: 67 kg

DRUGS (3)
  1. LAMOTRIGINE [Suspect]
     Active Substance: LAMOTRIGINE
     Indication: Seizure
     Dosage: 200 MG TWICE  DAY ORAL ?
     Route: 048
  2. DOXYCYCLINE [Suspect]
     Active Substance: DOXYCYCLINE
     Dosage: 100 MG DAILY ORAL ?
     Route: 048
     Dates: start: 20250304, end: 20250308
  3. LAVENDER OIL [Suspect]
     Active Substance: LAVENDER OIL

REACTIONS (3)
  - Stevens-Johnson syndrome [None]
  - Penile ulceration [None]
  - Tongue ulceration [None]

NARRATIVE: CASE EVENT DATE: 20250308
